FAERS Safety Report 4397683-1 (Version None)
Quarter: 2004Q3

REPORT INFORMATION
  Report Type: 
  Country: None (occurrence: None)
  Receive Date: 20040713
  Receipt Date: 20040705
  Transmission Date: 20050211
  Serious: Yes (Hospitalization)
  Sender: FDA-Public Use
  Company Number: TPG2004A00077

PATIENT
  Age: 72 Year
  Sex: Female

DRUGS (1)
  1. ACTOS [Suspect]
     Indication: METABOLIC SYNDROME
     Dosage: 20 MG (30 MG, 1 IN 1D)
     Route: 048
     Dates: start: 20031101

REACTIONS (20)
  - AORTIC VALVE INCOMPETENCE [None]
  - ATRIAL FIBRILLATION [None]
  - ATRIAL FLUTTER [None]
  - BLOOD PRESSURE INCREASED [None]
  - BRONCHITIS CHRONIC [None]
  - CARDIAC ARREST [None]
  - DISEASE RECURRENCE [None]
  - FLUID RETENTION [None]
  - HEART RATE INCREASED [None]
  - INFECTION [None]
  - LIVER DISORDER [None]
  - LYMPHADENOPATHY [None]
  - MITRAL VALVE DISEASE [None]
  - MITRAL VALVE INCOMPETENCE [None]
  - OEDEMA PERIPHERAL [None]
  - PERIORBITAL OEDEMA [None]
  - PULMONARY HYPERTENSION [None]
  - RIGHT VENTRICULAR FAILURE [None]
  - SUPRAVENTRICULAR TACHYCARDIA [None]
  - VENTRICULAR EXTRASYSTOLES [None]
